FAERS Safety Report 15744899 (Version 3)
Quarter: 2019Q1

REPORT INFORMATION
  Report Type: Spontaneous
  Country: TR (occurrence: TR)
  Receive Date: 20181220
  Receipt Date: 20190104
  Transmission Date: 20190417
  Serious: Yes (Other)
  Sender: FDA-Public Use
  Company Number: TR-PFIZER INC-2018519507

PATIENT
  Age: 24 Year
  Sex: Female

DRUGS (2)
  1. LYRICA [Suspect]
     Active Substance: PREGABALIN
     Dosage: 300 MG, UNK
     Route: 048
  2. LYRICA [Suspect]
     Active Substance: PREGABALIN
     Dosage: 15 TABLETS OF PREGABALIN [LYRICA] 300MG
     Route: 048

REACTIONS (9)
  - Loss of consciousness [Unknown]
  - Metabolic acidosis [Unknown]
  - Suicide attempt [Unknown]
  - Serous retinal detachment [Unknown]
  - Subretinal fluid [Recovered/Resolved]
  - Overdose [Unknown]
  - Seizure [Unknown]
  - Toxicity to various agents [Unknown]
  - Visual impairment [Unknown]
